FAERS Safety Report 9441794 (Version 3)
Quarter: 2013Q3

REPORT INFORMATION
  Report Type: Spontaneous
  Country: US (occurrence: US)
  Receive Date: 20130806
  Receipt Date: 20130823
  Transmission Date: 20140515
  Serious: No
  Sender: FDA-Public Use
  Company Number: US-PFIZER INC-2013225779

PATIENT
  Age: 55 Year
  Sex: Male
  Weight: 81.63 kg

DRUGS (1)
  1. FLECTOR [Suspect]
     Indication: ARTHRALGIA
     Dosage: UNK, 1X/DAY
     Route: 061
     Dates: start: 2013

REACTIONS (1)
  - Blood glucose increased [Unknown]
